FAERS Safety Report 24993504 (Version 1)
Quarter: 2025Q1

REPORT INFORMATION
  Report Type: Spontaneous
  Country: US (occurrence: US)
  Receive Date: 20250221
  Receipt Date: 20250221
  Transmission Date: 20250408
  Serious: Yes (Hospitalization, Other)
  Sender: AMGEN
  Company Number: US-AMGEN-USASP2025033232

PATIENT

DRUGS (1)
  1. AMJEVITA [Suspect]
     Active Substance: ADALIMUMAB-ATTO
     Indication: Inflammatory bowel disease
     Route: 065

REACTIONS (4)
  - Small intestinal obstruction [Unknown]
  - Inflammatory bowel disease [Unknown]
  - Drug intolerance [Unknown]
  - Injection site reaction [Unknown]
